FAERS Safety Report 6157938-7 (Version None)
Quarter: 2009Q2

REPORT INFORMATION
  Report Type: 
  Country: None (occurrence: None)
  Receive Date: 20090417
  Receipt Date: 20090416
  Transmission Date: 20091009
  Serious: Yes (Death)
  Sender: FDA-Public Use
  Company Number: EG-SANOFI-SYNTHELABO-F01200900322

PATIENT
  Sex: Male
  Weight: 73 kg

DRUGS (3)
  1. LEUCOVORIN CALCIUM [Suspect]
     Dosage: 45 MG
     Route: 041
     Dates: start: 20080109, end: 20080109
  2. FLUOROURACIL [Suspect]
     Dosage: 750 MG
     Route: 040
     Dates: start: 20080109, end: 20080109
  3. OXALIPLATIN [Suspect]
     Indication: COLON CANCER
     Dosage: 150 MG
     Route: 041
     Dates: start: 20080109, end: 20080109

REACTIONS (1)
  - PERIPHERAL ISCHAEMIA [None]
